FAERS Safety Report 23782028 (Version 2)
Quarter: 2024Q2

REPORT INFORMATION
  Report Type: Other
  Country: EG (occurrence: EG)
  Receive Date: 20240425
  Receipt Date: 20240501
  Transmission Date: 20240716
  Serious: Yes (Life-Threatening, Hospitalization, Other)
  Sender: FDA-Public Use
  Company Number: EG-002147023-NVSC2023EG022657

PATIENT
  Age: 42 Year
  Sex: Male

DRUGS (23)
  1. XOLAIR [Suspect]
     Active Substance: OMALIZUMAB
     Indication: Asthma
     Dosage: 150 MG, QMO
     Route: 058
     Dates: start: 20230128
  2. XOLAIR [Suspect]
     Active Substance: OMALIZUMAB
     Dosage: 1 DOSAGE FORM, QMO
     Route: 058
     Dates: start: 202301
  3. XOLAIR [Suspect]
     Active Substance: OMALIZUMAB
     Dosage: 600 MG, (4 XOLAIR INJECTION) AFTER 15 DAYS
     Route: 058
  4. XOLAIR [Suspect]
     Active Substance: OMALIZUMAB
     Dosage: 150 MG, QMO (ONE XOLAIR INJECTION PER MONTH)
     Route: 058
     Dates: start: 2021
  5. XOLAIR [Suspect]
     Active Substance: OMALIZUMAB
     Dosage: POWDER AND SOLVENT FOR SOLUTION FOR INJECTION
     Route: 065
  6. XOLAIR [Suspect]
     Active Substance: OMALIZUMAB
     Dosage: POWDER AND SOLVENT FOR SOLUTION FOR INJECTION
     Route: 065
  7. XOLAIR [Suspect]
     Active Substance: OMALIZUMAB
     Dosage: 150 MG, QMO
     Route: 058
     Dates: start: 20230603, end: 202307
  8. XOLAIR [Suspect]
     Active Substance: OMALIZUMAB
     Dosage: 150 MG, QMO (ONE XOLAIR INJECTION PER MONTH)
     Route: 058
     Dates: end: 202308
  9. XOLAIR [Suspect]
     Active Substance: OMALIZUMAB
     Dosage: 150 MG, QMO (4 INJECTION AT ONCE)
     Route: 058
     Dates: start: 202307
  10. MONTELUKAST SODIUM [Suspect]
     Active Substance: MONTELUKAST SODIUM
     Indication: Product used for unknown indication
     Route: 065
  11. PANTOPRAZOLE [Suspect]
     Active Substance: PANTOPRAZOLE
     Indication: Gastrointestinal inflammation
     Dosage: 40 MG, QD BEFORE BREAKFAST (STARTED 4 YEARS AGO)
     Route: 065
  12. LORATADINE [Concomitant]
     Active Substance: LORATADINE
     Indication: Antiallergic therapy
     Dosage: 1 DOSAGE FORM, QD
     Dates: start: 20230129
  13. LORATADINE [Concomitant]
     Active Substance: LORATADINE
     Indication: Asthma
  14. NEBIVOLOL [Concomitant]
     Active Substance: NEBIVOLOL
     Indication: Hypersensitivity
     Dosage: 1 DOSAGE FORM, QD (AT NIGHT) STARTED 3 MONTHS AGO
  15. NEBIVOLOL [Concomitant]
     Active Substance: NEBIVOLOL
     Indication: Asthma
  16. FORADIL [Concomitant]
     Active Substance: FORMOTEROL FUMARATE
     Indication: Bronchial disorder
     Dosage: 1 DOSAGE FORM, BID (3 MONTHS AGO)
     Dates: start: 2020
  17. FORADIL [Concomitant]
     Active Substance: FORMOTEROL FUMARATE
     Indication: Hypersensitivity
     Dosage: UNK, BID (TWICE DAILY AT MORNING AND NIGHT)
  18. PHENADONE [Concomitant]
     Indication: Hypersensitivity
     Dosage: 1 DOSAGE FORM, TID (3 MONTHS AGO)
  19. PHENADONE [Concomitant]
     Indication: Inflammation
  20. INHALEX FORTE [Concomitant]
     Indication: Hypersensitivity
     Dosage: UNK, BID
     Dates: start: 2020
  21. EBASTINE [Concomitant]
     Active Substance: EBASTINE
     Indication: Hypersensitivity
     Dosage: 1 DOSAGE FORM, QD (1 TAB AT NIGHT)
     Dates: start: 2020
  22. SERETIDE [Concomitant]
     Active Substance: FLUTICASONE PROPIONATE\SALMETEROL XINAFOATE
     Indication: Hypersensitivity
     Dosage: UNK, QD (3 MONTHS AGO) (^ITS COLOR IS PURBLE AS PER REPORTER^S WORDS)
  23. SERETIDE [Concomitant]
     Active Substance: FLUTICASONE PROPIONATE\SALMETEROL XINAFOATE
     Indication: Asthma

REACTIONS (22)
  - Asthma [Recovered/Resolved]
  - Asthma [Recovering/Resolving]
  - Feeling abnormal [Recovered/Resolved]
  - Respiratory failure [Recovering/Resolving]
  - Feeling abnormal [Recovering/Resolving]
  - Hypersensitivity [Recovered/Resolved]
  - Heart rate increased [Recovered/Resolved]
  - Influenza [Recovered/Resolved]
  - Dyspnoea exertional [Not Recovered/Not Resolved]
  - Rash macular [Recovered/Resolved]
  - Acne [Recovered/Resolved]
  - Scratch [Recovered/Resolved]
  - Injury [Recovered/Resolved]
  - Cough [Not Recovered/Not Resolved]
  - Rash [Recovered/Resolved]
  - Erythema [Recovering/Resolving]
  - Rash erythematous [Recovering/Resolving]
  - Allergy test positive [Unknown]
  - Pruritus [Recovering/Resolving]
  - Pruritus [Recovered/Resolved]
  - Blood immunoglobulin E increased [Unknown]
  - Off label use [Unknown]

NARRATIVE: CASE EVENT DATE: 20210101
